FAERS Safety Report 12503718 (Version 1)
Quarter: 2016Q2

REPORT INFORMATION
  Report Type: Report from Study
  Country: RU (occurrence: RU)
  Receive Date: 20160628
  Receipt Date: 20160628
  Transmission Date: 20160815
  Serious: Yes (Death, Hospitalization, Other)
  Sender: FDA-Public Use
  Company Number: PHHO2009RU019253

PATIENT
  Age: 67 Year
  Sex: Male
  Weight: 61 kg

DRUGS (4)
  1. TYKERB [Suspect]
     Active Substance: LAPATINIB DITOSYLATE
     Indication: GASTRIC CANCER
     Dosage: 1250 MG, QD
     Route: 048
     Dates: start: 20090527, end: 20090604
  2. COMPARATOR CAPECITABINE [Suspect]
     Active Substance: CAPECITABINE
     Indication: GASTRIC CANCER
     Dosage: 2800 MG (1700 MG/M2 X 1.68), QD
     Route: 048
     Dates: start: 20090527, end: 20090605
  3. DEPAKINE [Concomitant]
     Active Substance: VALPROATE SODIUM
     Indication: EPILEPSY
     Dosage: 500 MG, BID
     Route: 048
     Dates: start: 2005
  4. COMPARATOR OXALIPLATIN [Suspect]
     Active Substance: OXALIPLATIN
     Indication: GASTRIC CANCER
     Dosage: 220 MG (130 MG/M2 X 1.68), CYCLIC (ONCE ON DAY 1)
     Route: 042
     Dates: start: 20090527, end: 20090604

REACTIONS (7)
  - Atrial fibrillation [Recovered/Resolved]
  - Pulmonary infarction [Not Recovered/Not Resolved]
  - Deep vein thrombosis [Not Recovered/Not Resolved]
  - Ejection fraction decreased [Not Recovered/Not Resolved]
  - Acute myocardial infarction [Fatal]
  - Pneumonia [Recovered/Resolved]
  - Pulmonary embolism [Not Recovered/Not Resolved]

NARRATIVE: CASE EVENT DATE: 20090605
